FAERS Safety Report 15627360 (Version 1)
Quarter: 2018Q4

REPORT INFORMATION
  Report Type: Spontaneous
  Country: NL (occurrence: NL)
  Receive Date: 20181116
  Receipt Date: 20181116
  Transmission Date: 20190205
  Serious: Yes (Other)
  Sender: FDA-Public Use
  Company Number: NL-EMD SERONO-9051822

PATIENT
  Sex: Female

DRUGS (4)
  1. GONAL-F [Suspect]
     Active Substance: FOLLITROPIN
     Dosage: RAISED UNIT DOSE TO 62.5 UNITS
  2. CLOMID [Concomitant]
     Active Substance: CLOMIPHENE CITRATE
     Indication: MANAGEMENT OF REPRODUCTION
  3. GONAL-F [Suspect]
     Active Substance: FOLLITROPIN
     Indication: MANAGEMENT OF REPRODUCTION
     Dosage: UNKNOWN DOSAGE
  4. OVITRELLE [Suspect]
     Active Substance: CHORIOGONADOTROPIN ALFA
     Indication: MANAGEMENT OF REPRODUCTION

REACTIONS (5)
  - Indeterminate pregnancy test result [Unknown]
  - Confusional state [Unknown]
  - Exposure during pregnancy [Unknown]
  - Anxiety [Unknown]
  - Haemorrhage in pregnancy [Unknown]
